FAERS Safety Report 6142174-0 (Version None)
Quarter: 2009Q2

REPORT INFORMATION
  Report Type: 
  Country: None (occurrence: None)
  Receive Date: 20090402
  Receipt Date: 20090325
  Transmission Date: 20091009
  Serious: Yes (Other)
  Sender: FDA-Public Use
  Company Number: US-GENENTECH-275979

PATIENT
  Age: 35 Year
  Sex: Female

DRUGS (38)
  1. RITUXAN [Suspect]
     Indication: LUPUS NEPHRITIS
     Dosage: 375 MG/M2, UNK
     Route: 042
     Dates: start: 20041008
  2. RITUXAN [Suspect]
     Dosage: 750 MG/M2, UNK
     Route: 042
     Dates: start: 20060307
  3. DIPHENHYDRAMINE [Concomitant]
     Indication: DRUG USE FOR UNKNOWN INDICATION
     Dosage: 50 MG, UNK
     Dates: start: 20041008
  4. METHYLPREDNISOLONE 4MG TAB [Concomitant]
     Indication: DRUG USE FOR UNKNOWN INDICATION
     Dosage: 500 MG, UNK
     Route: 042
     Dates: start: 20041008
  5. METHYLPREDNISOLONE 4MG TAB [Concomitant]
     Dosage: 250 MG, UNK
     Dates: start: 20041015
  6. METHYLPREDNISOLONE 4MG TAB [Concomitant]
     Dosage: 1000 MG, UNK
     Dates: start: 20051027
  7. CYCLOPHOSPHAMIDE [Concomitant]
     Indication: DRUG USE FOR UNKNOWN INDICATION
     Dosage: 2000 MG/M2, UNK
     Route: 042
     Dates: start: 20041008
  8. CYCLOPHOSPHAMIDE [Concomitant]
     Dosage: 1200 MG/M2, UNK
     Route: 042
     Dates: start: 20060308
  9. MESNA [Concomitant]
     Indication: DRUG USE FOR UNKNOWN INDICATION
     Dosage: 1200 MG/M2, UNK
     Route: 041
     Dates: start: 20041008
  10. MESNA [Concomitant]
     Dosage: 150 MG/M2, UNK
     Route: 042
     Dates: start: 20060308
  11. MESNA [Concomitant]
     Dosage: 1200 MG/M2, UNK
     Route: 042
     Dates: start: 20060308
  12. NEUPOGEN [Concomitant]
     Indication: DRUG USE FOR UNKNOWN INDICATION
     Dosage: 10 A?G/KG, QD
     Route: 058
     Dates: start: 20060216
  13. NEUPOGEN [Concomitant]
     Dosage: 5 A?G/KG, QD
     Route: 058
     Dates: start: 20060315
  14. DEXAMETHASONE [Concomitant]
     Indication: DRUG USE FOR UNKNOWN INDICATION
     Dosage: 8 MG, UNK
     Dates: start: 20060212
  15. FUROSEMIDE [Concomitant]
     Indication: DRUG USE FOR UNKNOWN INDICATION
     Dosage: 20 MG, UNK
     Dates: start: 20060213
  16. ONDANSETRON [Concomitant]
     Indication: DRUG USE FOR UNKNOWN INDICATION
     Dosage: 8 MG, Q12H
     Dates: start: 20060213
  17. LISINOPRIL [Concomitant]
     Indication: DRUG USE FOR UNKNOWN INDICATION
     Dosage: 10 MG, QD
     Dates: start: 20060214
  18. ATORVASTATIN CALCIUM [Concomitant]
     Indication: DRUG USE FOR UNKNOWN INDICATION
     Dosage: 20 MG, QHS
     Dates: start: 20060216
  19. OMEPRAZOLE [Concomitant]
     Indication: DRUG USE FOR UNKNOWN INDICATION
     Dosage: 20 MG, UNK
     Dates: start: 20060216
  20. PREDNISONE [Concomitant]
     Indication: DRUG USE FOR UNKNOWN INDICATION
     Dosage: 20 MG, UNK
     Dates: start: 20060216
  21. VALACYCLOVIR [Concomitant]
     Indication: DRUG USE FOR UNKNOWN INDICATION
     Dosage: 500 MG, UNK
     Dates: start: 20060216
  22. FLUDARABINE PHOSPHATE [Concomitant]
     Indication: DRUG USE FOR UNKNOWN INDICATION
     Dosage: 30 MG/M2, UNK
     Route: 042
     Dates: start: 20060308
  23. SULFAMETHOXAZOLE AND TRIMETHOPRIM [Concomitant]
     Indication: DRUG USE FOR UNKNOWN INDICATION
     Dosage: 1 TABLET, UNK
     Dates: start: 20060308
  24. CASPOFUNGIN [Concomitant]
     Indication: DRUG USE FOR UNKNOWN INDICATION
     Dosage: 70 MG, UNK
     Dates: start: 20060312
  25. CEFTAZIDIME [Concomitant]
     Indication: DRUG USE FOR UNKNOWN INDICATION
     Dosage: 2000 MG, UNK
     Dates: start: 20060314
  26. VANCOMYCIN HCL [Concomitant]
     Indication: DRUG USE FOR UNKNOWN INDICATION
     Dosage: 1000 MG, UNK
     Dates: start: 20060314
  27. HEPARIN [Concomitant]
     Indication: DRUG USE FOR UNKNOWN INDICATION
     Dosage: 5.0 ML, UNK
     Dates: start: 20060324
  28. EPOETIN ALFA [Concomitant]
     Indication: DRUG USE FOR UNKNOWN INDICATION
     Dosage: 10000 ML, 1/WEEK
     Dates: start: 20060627
  29. PENTAMIDINDIISETHIONAT [Concomitant]
     Indication: DRUG USE FOR UNKNOWN INDICATION
     Dosage: 300 MG, UNK
     Dates: start: 20060802
  30. BROMIDES NOS [Concomitant]
     Indication: DRUG USE FOR UNKNOWN INDICATION
     Dosage: 2.5 MG, PRN
     Dates: start: 20060802
  31. VACCINE [Concomitant]
     Indication: DRUG USE FOR UNKNOWN INDICATION
     Dosage: 0.5 ML, UNK
     Dates: start: 20060926
  32. VACCINE [Concomitant]
     Dosage: 0.5 ML, UNK
     Dates: start: 20070312
  33. VACCINE [Concomitant]
     Dosage: 0.5 ML, UNK
     Dates: start: 20080618
  34. ALENDRONATE SODIUM [Concomitant]
     Indication: DRUG USE FOR UNKNOWN INDICATION
     Dosage: 35 MG, 7/WEEK
     Dates: start: 20060926
  35. LEVOFLOXACIN [Concomitant]
     Indication: DRUG USE FOR UNKNOWN INDICATION
     Dosage: 500 MG, QD
     Dates: start: 20070518
  36. MULTI-VITAMIN [Concomitant]
     Indication: DRUG USE FOR UNKNOWN INDICATION
     Dosage: UNK
     Dates: start: 20060214
  37. POTASSIUM CHLORIDE [Concomitant]
     Indication: DRUG USE FOR UNKNOWN INDICATION
     Dosage: 20 MEQ, BID
     Dates: start: 20060315
  38. UREA [Concomitant]
     Indication: DRUG USE FOR UNKNOWN INDICATION
     Dosage: 10 %, BID
     Route: 061
     Dates: start: 20060620

REACTIONS (2)
  - LYMPHOPENIA [None]
  - VACCINATION FAILURE [None]
